FAERS Safety Report 8306180-X (Version None)
Quarter: 2012Q2

REPORT INFORMATION
  Report Type: 
  Country: None (occurrence: None)
  Receive Date: 20120423
  Receipt Date: 20120420
  Transmission Date: 20120825
  Serious: Yes (Death, Hospitalization)
  Sender: FDA-Public Use
  Company Number: AU-B.I. PHARMACEUTICALS,INC./RIDGEFIELD-2012-AU-00779AU

PATIENT
  Sex: Male

DRUGS (5)
  1. PRADAXA [Suspect]
     Indication: CEREBROVASCULAR ACCIDENT PROPHYLAXIS
     Dates: start: 20111013
  2. PREDNISOLONE [Concomitant]
     Indication: ENCEPHALOPATHY
     Dosage: 15 MG
  3. AZATHIOPRINE [Concomitant]
     Indication: ENCEPHALOPATHY
     Dosage: 200 MG
  4. IMMUNE GLOBULIN INTRAVENOUS (HUMAN) [Concomitant]
     Indication: ENCEPHALOPATHY
  5. PRADAXA [Suspect]
     Indication: ATRIAL FIBRILLATION

REACTIONS (7)
  - ENCEPHALOPATHY [None]
  - RESPIRATORY DISTRESS [None]
  - DEATH [None]
  - LETHARGY [None]
  - GAIT DISTURBANCE [None]
  - DYSARTHRIA [None]
  - PNEUMONIA [None]
